FAERS Safety Report 24047229 (Version 1)
Quarter: 2024Q3

REPORT INFORMATION
  Report Type: Spontaneous
  Country: JP (occurrence: JP)
  Receive Date: 20240703
  Receipt Date: 20240703
  Transmission Date: 20241017
  Serious: Yes (Other)
  Sender: GRANULES INDIA
  Company Number: JP-GRANULES-JP-2024GRALIT00249

PATIENT
  Sex: Male

DRUGS (4)
  1. IBUPROFEN [Suspect]
     Active Substance: IBUPROFEN
     Indication: Histiocytic necrotising lymphadenitis
     Route: 065
  2. CYCLOSPORINE [Suspect]
     Active Substance: CYCLOSPORINE
     Indication: Histiocytic necrotising lymphadenitis
     Dosage: AT HIS SECOND RELAPSE.
     Route: 065
  3. CYCLOSPORINE [Suspect]
     Active Substance: CYCLOSPORINE
     Route: 065
  4. CYCLOSPORINE [Suspect]
     Active Substance: CYCLOSPORINE
     Dosage: 1.3-2.5 MG/KG/DAY
     Route: 065

REACTIONS (4)
  - Hypothermia [Unknown]
  - Bradycardia [Unknown]
  - Hypotension [Unknown]
  - Product use in unapproved indication [Unknown]
